FAERS Safety Report 4967398-7 (Version None)
Quarter: 2006Q2

REPORT INFORMATION
  Report Type: 
  Country: None (occurrence: None)
  Receive Date: 20060410
  Receipt Date: 20060324
  Transmission Date: 20061013
  Serious: Yes (Hospitalization)
  Sender: FDA-Public Use
  Company Number: US-BRISTOL-MYERS SQUIBB COMPANY-13326103

PATIENT
  Age: 48 Year
  Sex: Male
  Weight: 94 kg

DRUGS (3)
  1. ERBITUX [Suspect]
     Indication: SQUAMOUS CELL CARCINOMA
     Dosage: 1ST COURSE = 25-JAN-2006.  TOTAL DOSE ADMINISTERED THIS COURSE = 4164 MG.
     Dates: start: 20060307, end: 20060307
  2. DOCETAXEL [Suspect]
     Indication: SQUAMOUS CELL CARCINOMA
     Dosage: 1ST DOSE = 25-JAN-2006.  TOTAL DOSE ADMINISTERED THIS COURSE = 198 MG.
     Dates: start: 20060307, end: 20060307
  3. RADIATION THERAPY [Suspect]
     Indication: SQUAMOUS CELL CARCINOMA
     Dosage: EXTERNAL BEAM RADIATION 66 GY/# OF FRACTIONS = 33/# OF ELAPSED DAYS = 48.
     Dates: start: 20060320

REACTIONS (6)
  - DEHYDRATION [None]
  - MALNUTRITION [None]
  - MUCOSAL INFLAMMATION [None]
  - NAUSEA [None]
  - VOMITING [None]
  - WEIGHT DECREASED [None]
